FAERS Safety Report 21378358 (Version 1)
Quarter: 2022Q3

REPORT INFORMATION
  Report Type: Spontaneous
  Country: JP (occurrence: JP)
  Receive Date: 20220927
  Receipt Date: 20220927
  Transmission Date: 20221027
  Serious: Yes (Other)
  Sender: FDA-Public Use
  Company Number: JP-NOVARTISPH-NVSJ2022JP098019

PATIENT

DRUGS (1)
  1. GLYCOPYRROLATE\INDACATEROL\MOMETASONE FUROATE [Suspect]
     Active Substance: GLYCOPYRROLATE\INDACATEROL\MOMETASONE FUROATE
     Indication: Asthma
     Dosage: 1DF: INDACATEROL ACETATE 150UG,GLYCOPYRRONIUM BROMIDE 50UG,MOMETASONE FUROATE UNK

REACTIONS (1)
  - Hypokalaemia [Unknown]
